FAERS Safety Report 18911578 (Version 2)
Quarter: 2021Q1

REPORT INFORMATION
  Report Type: Spontaneous
  Country: US (occurrence: US)
  Receive Date: 20210218
  Receipt Date: 20210324
  Transmission Date: 20210420
  Serious: No
  Sender: FDA-Public Use
  Company Number: US-SA-2021SA055427

PATIENT
  Age: 30 Year
  Sex: Female

DRUGS (1)
  1. DUPIXENT [Suspect]
     Active Substance: DUPILUMAB
     Indication: DERMATITIS ATOPIC
     Route: 058
     Dates: start: 202010

REACTIONS (3)
  - Arthralgia [Unknown]
  - Therapeutic response decreased [Unknown]
  - Miliaria [Recovered/Resolved]

NARRATIVE: CASE EVENT DATE: 202102
